FAERS Safety Report 16043037 (Version 2)
Quarter: 2019Q2

REPORT INFORMATION
  Report Type: Spontaneous
  Country: AU (occurrence: AU)
  Receive Date: 20190306
  Receipt Date: 20190514
  Transmission Date: 20190711
  Serious: Yes (Other)
  Sender: FDA-Public Use
  Company Number: AU-SA-2019SA055176

PATIENT
  Sex: Male

DRUGS (2)
  1. INSULIN GLULISINE [Suspect]
     Active Substance: INSULIN GLULISINE
     Dosage: UNK UNK, UNK
     Route: 065
  2. LANTUS [Suspect]
     Active Substance: INSULIN GLARGINE
     Dosage: 54 U, HS

REACTIONS (5)
  - Injection site bruising [Unknown]
  - Blood glucose increased [Unknown]
  - Stent placement [Unknown]
  - Blood glucose fluctuation [Unknown]
  - Product administration error [Unknown]
